FAERS Safety Report 4644909-2 (Version None)
Quarter: 2005Q2

REPORT INFORMATION
  Report Type: 
  Country: None (occurrence: None)
  Receive Date: 20050422
  Receipt Date: 20050411
  Transmission Date: 20051028
  Serious: Yes (Other)
  Sender: FDA-Public Use
  Company Number: FABR-11040

PATIENT
  Age: 55 Year
  Sex: Male
  Weight: 110 kg

DRUGS (8)
  1. FABRAZYME [Suspect]
     Indication: FABRY'S DISEASE
     Dosage: 110 MG Q2WKS IV
     Route: 042
     Dates: start: 20050114
  2. COUMADIN [Concomitant]
  3. ZOLOFT [Concomitant]
  4. POTASSIUM CHLORIDE [Concomitant]
  5. HYZAAR [Concomitant]
  6. ENALAPRIL MALEATE [Concomitant]
  7. ANTIVERT [Concomitant]
  8. NITROGLYCERIN [Concomitant]

REACTIONS (3)
  - BLOOD PRESSURE DECREASED [None]
  - CHILLS [None]
  - HYPERHIDROSIS [None]
